FAERS Safety Report 15881830 (Version 9)
Quarter: 2022Q1

REPORT INFORMATION
  Report Type: Spontaneous
  Country: US (occurrence: US)
  Receive Date: 20190128
  Receipt Date: 20220326
  Transmission Date: 20220423
  Serious: Yes (Hospitalization, Other)
  Sender: FDA-Public Use
  Company Number: US-SA-2019SA021950

PATIENT
  Age: 49 Year
  Sex: Female

DRUGS (2)
  1. LUMIZYME [Suspect]
     Active Substance: ALGLUCOSIDASE ALFA
     Indication: Glycogen storage disease type II
     Dosage: 1400 MG, QOW
     Route: 041
     Dates: start: 20160526
  2. LUMIZYME [Suspect]
     Active Substance: ALGLUCOSIDASE ALFA
     Dosage: 1400 MG, QOW
     Route: 041

REACTIONS (7)
  - Pneumonia [Unknown]
  - Cerebrovascular accident [Unknown]
  - Respiratory arrest [Unknown]
  - Respiratory failure [Unknown]
  - COVID-19 [Unknown]
  - Exposure to SARS-CoV-2 [Unknown]
  - Product dose omission issue [Unknown]

NARRATIVE: CASE EVENT DATE: 20190301
